FAERS Safety Report 6810885-7 (Version None)
Quarter: 2010Q2

REPORT INFORMATION
  Report Type: 
  Country: None (occurrence: None)
  Receive Date: 20100630
  Receipt Date: 20081201
  Transmission Date: 20101027
  Serious: No
  Sender: FDA-Public Use
  Company Number: US-PFIZER INC-2008078794

PATIENT
  Sex: Female
  Weight: 72.727 kg

DRUGS (5)
  1. ESTRING [Suspect]
     Indication: MENOPAUSE
     Route: 067
     Dates: start: 20080401
  2. SOMA COMPOUND ^WALLACE^ [Concomitant]
     Indication: MIGRAINE
  3. SOMA COMPOUND ^WALLACE^ [Concomitant]
     Indication: HEADACHE
  4. ACETYLSALICYLIC ACID [Concomitant]
  5. MUSCLE RELAXANTS [Concomitant]

REACTIONS (1)
  - DRUG INEFFECTIVE [None]
